FAERS Safety Report 6340224-X (Version None)
Quarter: 2009Q3

REPORT INFORMATION
  Report Type: 
  Country: None (occurrence: None)
  Receive Date: 20090902
  Receipt Date: 20090826
  Transmission Date: 20100115
  Serious: Yes (Hospitalization)
  Sender: FDA-Public Use
  Company Number: 20085677

PATIENT
  Sex: Female

DRUGS (1)
  1. LIORESAL [Suspect]
     Indication: MUSCLE SPASTICITY
     Dosage: MCG, DAILY, INTRATHECAL
     Route: 037

REACTIONS (9)
  - DEVICE FAILURE [None]
  - DYSTONIA [None]
  - FALL [None]
  - FEELING ABNORMAL [None]
  - HYPERTONIA [None]
  - INTRACRANIAL HYPOTENSION [None]
  - PRURITUS [None]
  - SEROMA [None]
  - TACHYCARDIA [None]
